FAERS Safety Report 5345269-4 (Version None)
Quarter: 2007Q2

REPORT INFORMATION
  Report Type: 
  Country: None (occurrence: None)
  Receive Date: 20070601
  Receipt Date: 20070515
  Transmission Date: 20071010
  Serious: Yes (Hospitalization)
  Sender: FDA-Public Use
  Company Number: D-07-0041

PATIENT
  Sex: Male

DRUGS (1)
  1. JANTOVEN [Suspect]
     Dosage: PO
     Route: 048
     Dates: start: 20070420

REACTIONS (2)
  - BLOOD DISORDER [None]
  - INTERNATIONAL NORMALISED RATIO ABNORMAL [None]
